FAERS Safety Report 25022159 (Version 2)
Quarter: 2025Q1

REPORT INFORMATION
  Report Type: Spontaneous
  Country: US (occurrence: US)
  Receive Date: 20250228
  Receipt Date: 20250318
  Transmission Date: 20250408
  Serious: No
  Sender: APOTEX
  Company Number: US-APOTEX-2025AP002295

PATIENT
  Sex: Male

DRUGS (2)
  1. BRIMONIDINE TARTRATE\TIMOLOL MALEATE [Suspect]
     Active Substance: BRIMONIDINE TARTRATE\TIMOLOL MALEATE
     Indication: Ocular discomfort
     Dosage: 1 GTT DROPS, BID (IN THE MORNING AND EVENING)
     Route: 047
     Dates: start: 20250129
  2. BRIMONIDINE TARTRATE\TIMOLOL MALEATE [Suspect]
     Active Substance: BRIMONIDINE TARTRATE\TIMOLOL MALEATE
     Dosage: 1 GTT DROPS, QD
     Route: 047
     Dates: start: 20250220

REACTIONS (5)
  - Product dose omission issue [Unknown]
  - Device material issue [Unknown]
  - Device leakage [Unknown]
  - Device defective [Unknown]
  - Incorrect dose administered by device [Unknown]

NARRATIVE: CASE EVENT DATE: 20250101
